FAERS Safety Report 20120412 (Version 1)
Quarter: 2021Q4

REPORT INFORMATION
  Report Type: Spontaneous
  Country: US (occurrence: None)
  Receive Date: 20211126
  Receipt Date: 20211126
  Transmission Date: 20220303
  Serious: No
  Sender: FDA-Public Use
  Company Number: None

PATIENT
  Age: 72 Year
  Sex: Male

DRUGS (1)
  1. AMIODARONE [Suspect]
     Active Substance: AMIODARONE
     Indication: Product used for unknown indication
     Dosage: OTHER FREQUENCY : PER HOUR;?
     Route: 041

REACTIONS (3)
  - Infusion site pain [None]
  - Infusion site erythema [None]
  - Infusion site reaction [None]

NARRATIVE: CASE EVENT DATE: 20211122
